FAERS Safety Report 15672299 (Version 1)
Quarter: 2018Q4

REPORT INFORMATION
  Report Type: Spontaneous
  Country: DE (occurrence: DE)
  Receive Date: 20181129
  Receipt Date: 20181129
  Transmission Date: 20190205
  Serious: Yes (Other)
  Sender: FDA-Public Use
  Company Number: DE-TESARO, INC-DE-2018TSO04439

PATIENT
  Age: 84 Year
  Sex: Female

DRUGS (3)
  1. ZEJULA [Suspect]
     Active Substance: NIRAPARIB
     Indication: PRODUCT USED FOR UNKNOWN INDICATION
     Dosage: 100 MG, QD
     Route: 065
     Dates: start: 20180704
  2. ZEJULA [Suspect]
     Active Substance: NIRAPARIB
     Dosage: 200 MG, UNK
     Route: 065
     Dates: start: 201808, end: 201808
  3. ZEJULA [Suspect]
     Active Substance: NIRAPARIB
     Dosage: 100 MG, UNK
     Route: 065
     Dates: start: 201808

REACTIONS (4)
  - Intentional underdose [Not Recovered/Not Resolved]
  - Myalgia [Recovered/Resolved]
  - Back pain [Recovered/Resolved]
  - Immobile [Recovered/Resolved]

NARRATIVE: CASE EVENT DATE: 20180704
